FAERS Safety Report 5769901-6 (Version None)
Quarter: 2008Q2

REPORT INFORMATION
  Report Type: 
  Country: None (occurrence: None)
  Receive Date: 20080613
  Receipt Date: 20080417
  Transmission Date: 20081010
  Serious: No
  Sender: FDA-Public Use
  Company Number: US-ABBOTT-08P-163-0447028-00

PATIENT
  Sex: Female
  Weight: 172.52 kg

DRUGS (8)
  1. HUMIRA [Suspect]
     Indication: CROHN'S DISEASE
     Dates: start: 20071116
  2. CITALOPRAM HYDROBROMIDE [Concomitant]
     Indication: ANXIETY
     Route: 048
  3. CLONAZEPAM [Concomitant]
     Indication: ANXIETY
     Route: 048
  4. DICYCLOVERINE [Concomitant]
     Indication: ABDOMINAL PAIN UPPER
  5. HYDROCODONE [Concomitant]
     Indication: PAIN
     Route: 048
  6. HYDROCODONE [Concomitant]
     Indication: CROHN'S DISEASE
  7. OXYCODONE HCL [Concomitant]
     Indication: PAIN
     Route: 048
  8. OXYCODONE HCL [Concomitant]
     Indication: CROHN'S DISEASE

REACTIONS (2)
  - HYPERSOMNIA [None]
  - INSOMNIA [None]
